FAERS Safety Report 5861275-5 (Version None)
Quarter: 2008Q3

REPORT INFORMATION
  Report Type: 
  Country: None (occurrence: None)
  Receive Date: 20080827
  Receipt Date: 20080404
  Transmission Date: 20090109
  Serious: No
  Sender: FDA-Public Use
  Company Number: US-ABBOTT-08P-163-0445508-00

PATIENT
  Sex: Male
  Weight: 95.34 kg

DRUGS (4)
  1. COATED PDS [Suspect]
     Indication: BLOOD CHOLESTEROL INCREASED
     Dates: start: 20080201, end: 20080331
  2. COATED PDS [Suspect]
     Dates: start: 20080401
  3. OMEPRAZOLE [Concomitant]
     Indication: DYSPEPSIA
  4. ASPIRIN [Concomitant]
     Indication: CARDIAC DISORDER

REACTIONS (1)
  - FLUSHING [None]
